FAERS Safety Report 5473163-7 (Version None)
Quarter: 2007Q3

REPORT INFORMATION
  Report Type: 
  Country: None (occurrence: None)
  Receive Date: 20070927
  Receipt Date: 20070920
  Transmission Date: 20080115
  Serious: Yes (Hospitalization)
  Sender: FDA-Public Use
  Company Number: 2007-04303

PATIENT
  Age: 34 Year
  Sex: Male

DRUGS (1)
  1. COLCHICUM JTL LIQ [Suspect]
     Indication: BEHCET'S SYNDROME
     Dosage: 1 MG, DAILY

REACTIONS (1)
  - ACUTE PROMYELOCYTIC LEUKAEMIA [None]
